FAERS Safety Report 8269195-6 (Version None)
Quarter: 2012Q2

REPORT INFORMATION
  Report Type: 
  Country: None (occurrence: None)
  Receive Date: 20120409
  Receipt Date: 20120402
  Transmission Date: 20120825
  Serious: Yes (Other)
  Sender: FDA-Public Use
  Company Number: CHPA2012US005758

PATIENT
  Age: 54 Year
  Sex: Female
  Weight: 49.887 kg

DRUGS (1)
  1. PREVACID 24 HR [Suspect]
     Indication: GASTRIC ULCER
     Dosage: 60 MG, QD
     Route: 048

REACTIONS (7)
  - WEIGHT DECREASED [None]
  - MALNUTRITION [None]
  - THERAPEUTIC RESPONSE UNEXPECTED [None]
  - INCORRECT DRUG ADMINISTRATION DURATION [None]
  - VOMITING [None]
  - OFF LABEL USE [None]
  - OVERDOSE [None]
